FAERS Safety Report 6424745-7 (Version None)
Quarter: 2009Q4

REPORT INFORMATION
  Report Type: 
  Country: None (occurrence: None)
  Receive Date: 20091030
  Receipt Date: 20091030
  Transmission Date: 20100525
  Serious: No
  Sender: FDA-Public Use
  Company Number: None

PATIENT
  Age: 52 Year

DRUGS (1)
  1. ETOMIDATE [Suspect]
     Indication: DEPRESSION
     Dosage: 20 MG ONCE IV
     Route: 042
     Dates: start: 20051209, end: 20051209

REACTIONS (2)
  - BRADYCARDIA [None]
  - GRAND MAL CONVULSION [None]
